FAERS Safety Report 9675102 (Version 1)
Quarter: 2013Q4

REPORT INFORMATION
  Report Type: Spontaneous
  Country: CN (occurrence: CN)
  Receive Date: 20131107
  Receipt Date: 20131107
  Transmission Date: 20140711
  Serious: Yes (Hospitalization)
  Sender: FDA-Public Use
  Company Number: CN-BAYER-2013-132856

PATIENT
  Age: 84 Year
  Sex: Male

DRUGS (5)
  1. GLUCOBAY [Suspect]
     Indication: DIABETES MELLITUS
     Dosage: 50 MG, TID
     Route: 048
     Dates: start: 20120604, end: 20120604
  2. PLAVIX [Concomitant]
  3. IMDUR [Concomitant]
  4. ADALAT GITS [Concomitant]
  5. NOVOLIN 30R [Concomitant]
     Dosage: A MORNING DOSE OF 28 U, AN EVENING DOSE OF 26 U

REACTIONS (2)
  - Diarrhoea [Recovered/Resolved]
  - Dehydration [Recovered/Resolved]
